FAERS Safety Report 25464282 (Version 1)
Quarter: 2025Q2

REPORT INFORMATION
  Report Type: Spontaneous
  Country: US (occurrence: US)
  Receive Date: 20250621
  Receipt Date: 20250621
  Transmission Date: 20250716
  Serious: No
  Sender: AMGEN
  Company Number: US-AMGEN-USASP2025116123

PATIENT
  Age: 63 Year
  Sex: Female

DRUGS (1)
  1. EVENITY [Suspect]
     Active Substance: ROMOSOZUMAB-AQQG
     Indication: Product used for unknown indication
     Route: 065
     Dates: start: 202505, end: 2025

REACTIONS (2)
  - Lymphadenopathy [Unknown]
  - Swelling [Unknown]

NARRATIVE: CASE EVENT DATE: 20250501
